FAERS Safety Report 14372015 (Version 2)
Quarter: 2018Q1

REPORT INFORMATION
  Report Type: Spontaneous
  Country: FR (occurrence: FR)
  Receive Date: 20180110
  Receipt Date: 20180125
  Transmission Date: 20180509
  Serious: Yes (Other)
  Sender: FDA-Public Use
  Company Number: FR-BAYER-2018-003700

PATIENT
  Age: 36 Year
  Sex: Female
  Weight: 59 kg

DRUGS (2)
  1. MIRENA [Suspect]
     Active Substance: LEVONORGESTREL
     Indication: CONTRACEPTION
     Dosage: 1 DF, UNK
     Route: 015
     Dates: start: 20160916, end: 20171211
  2. MIRENA [Suspect]
     Active Substance: LEVONORGESTREL
     Indication: CONTRACEPTION
     Dosage: 20 MCG/24HR, CONT
     Route: 015
     Dates: start: 20160916, end: 20171211

REACTIONS (5)
  - Weight increased [Recovering/Resolving]
  - Insomnia [Recovered/Resolved]
  - Headache [Recovered/Resolved]
  - Loss of libido [Unknown]
  - Depression [Recovered/Resolved]

NARRATIVE: CASE EVENT DATE: 2017
